FAERS Safety Report 7804518-0 (Version None)
Quarter: 2011Q4

REPORT INFORMATION
  Report Type: 
  Country: None (occurrence: None)
  Receive Date: 20111010
  Receipt Date: 20110926
  Transmission Date: 20120403
  Serious: Yes (Other)
  Sender: FDA-Public Use
  Company Number: US-NOVOPROD-335897

PATIENT
  Age: 39 Year
  Sex: Female
  Weight: 100.68 kg

DRUGS (6)
  1. MULTIVITAMIN                       /00097801/ [Concomitant]
     Indication: SUPPLEMENTATION THERAPY
  2. VITAMIN D [Concomitant]
     Indication: SUPPLEMENTATION THERAPY
     Dosage: UNK, PRN
  3. FLAXSEED OIL [Concomitant]
     Indication: PRODUCT USED FOR UNKNOWN INDICATION
  4. PRENATAL VITAMINS                  /01549301/ [Concomitant]
     Indication: ALOPECIA
  5. NOVOLOG [Suspect]
     Indication: TYPE 2 DIABETES MELLITUS
     Dosage: 7 U, TID, BEFORE MEALS
     Route: 058
     Dates: start: 20110829, end: 20110919
  6. LEVEMIR [Suspect]
     Indication: TYPE 2 DIABETES MELLITUS
     Dosage: 30 U, QHS
     Route: 058
     Dates: start: 20110829, end: 20110919

REACTIONS (5)
  - INSOMNIA [None]
  - OEDEMA PERIPHERAL [None]
  - WEIGHT INCREASED [None]
  - BALANCE DISORDER [None]
  - DYSPNOEA [None]
